FAERS Safety Report 12147685 (Version 1)
Quarter: 2016Q1

REPORT INFORMATION
  Report Type: Spontaneous
  Country: US (occurrence: US)
  Receive Date: 20160304
  Receipt Date: 20160304
  Transmission Date: 20160526
  Serious: No
  Sender: FDA-Public Use
  Company Number: US-TAKEDA-2016TUS003353

PATIENT
  Age: 59 Year
  Sex: Female
  Weight: 78.5 kg

DRUGS (2)
  1. CONTRAVE [Suspect]
     Active Substance: BUPROPION HYDROCHLORIDE\NALTREXONE HYDROCHLORIDE
     Indication: OBESITY
     Dosage: 8/90 MG, QD
     Route: 048
     Dates: start: 20160221
  2. EMERGEN C [Concomitant]
     Active Substance: MINERALS\VITAMINS
     Dosage: UNK
     Route: 048

REACTIONS (2)
  - Dizziness [Recovering/Resolving]
  - Asthenia [Recovering/Resolving]

NARRATIVE: CASE EVENT DATE: 201602
